FAERS Safety Report 4390226-8 (Version None)
Quarter: 2004Q2

REPORT INFORMATION
  Report Type: 
  Country: None (occurrence: None)
  Receive Date: 20040630
  Receipt Date: 20040615
  Transmission Date: 20050107
  Serious: Yes (Death, Hospitalization)
  Sender: FDA-Public Use
  Company Number: 2004-BP-02540RP

PATIENT
  Age: 67 Year
  Sex: Male

DRUGS (4)
  1. AGGRENOX [Suspect]
     Indication: CEREBELLAR INFARCTION
     Dosage: 400/50MG (SEE TEXT, 1 CAP BID (STRENGTH 200/25 MG) PO
     Route: 048
     Dates: start: 20031019
  2. NOOTROPIL(PIRACETAM) (NR) [Concomitant]
  3. MANNITOL (MANNITOL) (NR) [Concomitant]
  4. ANTI-TB (NOT SPECIFIED) (NR) [Concomitant]

REACTIONS (4)
  - EMBOLISM [None]
  - HAEMORRHAGIC TRANSFORMATION STROKE [None]
  - PNEUMONIA ASPIRATION [None]
  - SICK SINUS SYNDROME [None]
